FAERS Safety Report 11060128 (Version 1)
Quarter: 2015Q2

REPORT INFORMATION
  Report Type: Spontaneous
  Country: US (occurrence: US)
  Receive Date: 20150423
  Receipt Date: 20150423
  Transmission Date: 20150821
  Serious: Yes (Other)
  Sender: FDA-Public Use
  Company Number: US-ARIAD PHARMACEUTICALS, INC-2014US004362

PATIENT

DRUGS (3)
  1. ICLUSIG [Suspect]
     Active Substance: PONATINIB
     Indication: CHRONIC MYELOID LEUKAEMIA
     Dosage: 30 MG, QD
     Route: 048
     Dates: start: 20140604
  2. ICLUSIG [Suspect]
     Active Substance: PONATINIB
     Dosage: UNK
  3. ICLUSIG [Suspect]
     Active Substance: PONATINIB
     Dosage: UNK

REACTIONS (8)
  - Skin exfoliation [Unknown]
  - Rash [Unknown]
  - Pain in extremity [Unknown]
  - Eczema [Unknown]
  - Thrombosis in device [Unknown]
  - Nausea [Unknown]
  - Erythema [Unknown]
  - Headache [Not Recovered/Not Resolved]
